FAERS Safety Report 5274758-6 (Version None)
Quarter: 2007Q1

REPORT INFORMATION
  Report Type: 
  Country: None (occurrence: None)
  Receive Date: 20070321
  Receipt Date: 20070306
  Transmission Date: 20070707
  Serious: No
  Sender: FDA-Public Use
  Company Number: T200700295

PATIENT
  Age: 66 Year
  Sex: Female

DRUGS (4)
  1. ULTRA-TECHNEKOW [Suspect]
     Indication: HEPATOBILIARY SCAN
     Dosage: 6 MCI, SINGLE, INTRAVENOUS
     Route: 042
     Dates: start: 20070306, end: 20070306
  2. ULTRA-TECHNEKOW [Suspect]
     Indication: HEPATOBILIARY SCAN
     Dosage: 6 MCI, SINGLE, INTRAVENOUS
     Route: 042
     Dates: start: 20070306, end: 20070306
  3. ULTRA-TECHNEKOW [Suspect]
  4. CHOLETEC [Suspect]
     Indication: HEPATOBILIARY SCAN
     Dosage: UNK, SINGLE, INTRAVENOUS
     Route: 042
     Dates: start: 20070306, end: 20070306

REACTIONS (1)
  - HYPERSENSITIVITY [None]
